FAERS Safety Report 7645381-0 (Version None)
Quarter: 2011Q3

REPORT INFORMATION
  Report Type: 
  Country: None (occurrence: None)
  Receive Date: 20110729
  Receipt Date: 20110720
  Transmission Date: 20111222
  Serious: Yes (Hospitalization)
  Sender: FDA-Public Use
  Company Number: CH-ASTRAZENECA-2011SE44019

PATIENT
  Age: 79 Year
  Sex: Female

DRUGS (8)
  1. CARVEDILOL [Interacting]
     Route: 048
     Dates: end: 20110303
  2. LEVOTHYROXINE SODIUM [Concomitant]
     Route: 048
  3. PREDNISONE [Concomitant]
     Route: 048
  4. ENALAPRIL MALEATE [Suspect]
     Route: 048
  5. LERCANIDIPINE [Concomitant]
     Route: 048
  6. ATACAND [Suspect]
     Route: 048
  7. ISOPTIN [Interacting]
     Route: 048
     Dates: start: 20110302, end: 20110303
  8. SINTROM [Concomitant]
     Route: 048

REACTIONS (5)
  - HYPERKALAEMIA [None]
  - RENAL FAILURE CHRONIC [None]
  - ATRIOVENTRICULAR BLOCK [None]
  - DRUG INTERACTION [None]
  - CARDIOGENIC SHOCK [None]
